FAERS Safety Report 10070938 (Version 1)
Quarter: 2014Q2

REPORT INFORMATION
  Report Type: Report from Study
  Country: BR (occurrence: BR)
  Receive Date: 20140410
  Receipt Date: 20140410
  Transmission Date: 20141212
  Serious: Yes (Disabling, Other)
  Sender: FDA-Public Use
  Company Number: PHHY2014BR040161

PATIENT
  Sex: Male
  Weight: 88 kg

DRUGS (4)
  1. GALVUS MET [Suspect]
     Indication: DIABETES MELLITUS
     Dosage: 2 DF (METF 850MG, VILD 50MG) DAILY
  2. METFORMIN [Suspect]
     Indication: DIABETES MELLITUS
     Dosage: 3 DF (850MG) DAILY
  3. METFORMIN [Suspect]
     Dosage: 1 DF (850MG) DAILY
  4. GLIMEPIRIDE [Concomitant]
     Indication: DIABETES MELLITUS
     Dosage: 1 DF (4MG) DAILY

REACTIONS (10)
  - Blindness [Not Recovered/Not Resolved]
  - Cerebrovascular accident [Unknown]
  - Hypoaesthesia [Unknown]
  - Paraesthesia [Unknown]
  - Gait disturbance [Unknown]
  - Hypertension [Unknown]
  - Diabetic neuropathy [Not Recovered/Not Resolved]
  - Pain in extremity [Unknown]
  - Eye disorder [Unknown]
  - Arterial occlusive disease [Unknown]
